FAERS Safety Report 16653379 (Version 2)
Quarter: 2019Q4

REPORT INFORMATION
  Report Type: Spontaneous
  Country: CN (occurrence: CN)
  Receive Date: 20190731
  Receipt Date: 20191129
  Transmission Date: 20200122
  Serious: Yes (Hospitalization, Other)
  Sender: FDA-Public Use
  Company Number: CN-ASTRAZENECA-2019SF07804

PATIENT
  Age: 18679 Day
  Sex: Male
  Weight: 66 kg

DRUGS (6)
  1. TRANILAST [Suspect]
     Active Substance: TRANILAST
     Indication: SCAR
     Route: 048
     Dates: start: 20190611, end: 20190626
  2. PREDNISOLONE ACETATE. [Concomitant]
     Active Substance: PREDNISOLONE ACETATE
     Indication: SCAR
     Route: 048
     Dates: start: 20190611, end: 20190626
  3. LOSEC [Suspect]
     Active Substance: OMEPRAZOLE
     Indication: PROPHYLAXIS
     Route: 048
     Dates: start: 20190611, end: 20190626
  4. GLUTATHIONE [Concomitant]
     Active Substance: GLUTATHIONE
     Route: 048
  5. BIFENDATE [Concomitant]
     Active Substance: BIFENDATE
     Route: 048
  6. GINKGO LEAVES [Concomitant]
     Route: 048

REACTIONS (3)
  - Jaundice [Unknown]
  - Liver disorder [Unknown]
  - Chronic hepatitis B [Unknown]

NARRATIVE: CASE EVENT DATE: 20190626
